FAERS Safety Report 5035536-6 (Version None)
Quarter: 2006Q2

REPORT INFORMATION
  Report Type: 
  Country: None (occurrence: None)
  Receive Date: 20060622
  Receipt Date: 20060614
  Transmission Date: 20061013
  Serious: Yes (Death, Hospitalization)
  Sender: FDA-Public Use
  Company Number: 200612203GDS

PATIENT
  Age: 55 Year
  Sex: Male
  Weight: 90 kg

DRUGS (14)
  1. SORAFENIB [Suspect]
     Indication: RENAL CELL CARCINOMA STAGE UNSPECIFIED
     Dosage: 200 MG, BID, ORAL
     Route: 048
     Dates: start: 20060505, end: 20060521
  2. PREDNISOLONE [Concomitant]
  3. FURIX [Concomitant]
  4. ZONOCT [Concomitant]
  5. LEXOTAN [Concomitant]
  6. PAMOL [Concomitant]
  7. OXYCONTIN [Concomitant]
  8. PARAFLEX [Concomitant]
  9. DICLON [Concomitant]
  10. PANTOPRAZOLE SODIUM [Concomitant]
  11. MEDILAX [Concomitant]
  12. PICOLON [Concomitant]
  13. OXYNORM [Concomitant]
  14. MOVICOL [MACROGOL, POTASSIUM CHLORIDE, SODIUM BICARBONATE, SODIUM CHLO [Concomitant]

REACTIONS (9)
  - ABDOMINAL INFECTION [None]
  - CONSTIPATION [None]
  - DISSEMINATED INTRAVASCULAR COAGULATION [None]
  - DIVERTICULITIS [None]
  - HYPOTENSION [None]
  - INTESTINAL PERFORATION [None]
  - PERITONITIS [None]
  - RESPIRATORY FAILURE [None]
  - SEPSIS [None]
